FAERS Safety Report 4409352-X (Version None)
Quarter: 2004Q3

REPORT INFORMATION
  Report Type: 
  Country: None (occurrence: None)
  Receive Date: 20040723
  Receipt Date: 20040629
  Transmission Date: 20050211
  Serious: Yes (Hospitalization)
  Sender: FDA-Public Use
  Company Number: 2004AP000558

PATIENT
  Age: 53 Year
  Sex: Male

DRUGS (3)
  1. RANITIDINE HCL [Suspect]
     Dosage: 300 MG; EVERY DAY (DAILY); ORAL
     Route: 048
  2. ATORVASTATIN CALCIUM [Concomitant]
  3. CLOPIDOGREL [Concomitant]

REACTIONS (6)
  - ACUTE GENERALISED EXANTHEMATOUS PUSTULOSIS [None]
  - EPIDERMAL NECROSIS [None]
  - LEUKOCYTOSIS [None]
  - NEUTROPHILIA [None]
  - SKIN DESQUAMATION [None]
  - TYPE IV HYPERSENSITIVITY REACTION [None]
